FAERS Safety Report 23705361 (Version 1)
Quarter: 2024Q2

REPORT INFORMATION
  Report Type: Spontaneous
  Country: US (occurrence: US)
  Receive Date: 20240404
  Receipt Date: 20240404
  Transmission Date: 20240715
  Serious: Yes (Other)
  Sender: FDA-Public Use
  Company Number: US-KOANAAP-SML-US-2024-00267

PATIENT
  Age: 5 Decade
  Sex: Male

DRUGS (3)
  1. DOCETAXEL [Suspect]
     Active Substance: DOCETAXEL\DOCETAXEL ANHYDROUS
     Indication: Hormone-refractory prostate cancer
     Route: 065
  2. LIRAMETOSTAT [Suspect]
     Active Substance: LIRAMETOSTAT
     Indication: Hormone-refractory prostate cancer
     Route: 065
  3. ENZALUTAMIDE [Suspect]
     Active Substance: ENZALUTAMIDE
     Indication: Hormone-refractory prostate cancer
     Route: 065

REACTIONS (3)
  - Retroperitoneal lymphadenopathy [Unknown]
  - Disease progression [Unknown]
  - Drug ineffective [Unknown]
